FAERS Safety Report 24374226 (Version 2)
Quarter: 2024Q4

REPORT INFORMATION
  Report Type: Spontaneous
  Country: US (occurrence: US)
  Receive Date: 20240927
  Receipt Date: 20241014
  Transmission Date: 20250115
  Serious: Yes (Other)
  Sender: BAXTER
  Company Number: US-BAXTER-2024BAX025070

PATIENT
  Age: 34 Year
  Sex: Female

DRUGS (11)
  1. DOXORUBICIN [Suspect]
     Active Substance: DOXORUBICIN
     Indication: Invasive ductal breast carcinoma
     Dosage: FIRST CYCLE THE DAY PRIOR
     Route: 042
  2. DOXORUBICIN [Suspect]
     Active Substance: DOXORUBICIN
     Indication: Metastases to bone
     Dosage: 100 MG, SECOND ROUND
     Route: 042
  3. DOXORUBICIN [Suspect]
     Active Substance: DOXORUBICIN
     Indication: Metastases to lymph nodes
     Dosage: CONTINUED TO RECEIVE CHEMOTHERAPY EVERY 3 WEEKS
     Route: 042
  4. CYCLOPHOSPHAMIDE [Suspect]
     Active Substance: CYCLOPHOSPHAMIDE
     Indication: Invasive ductal breast carcinoma
     Dosage: FIRST CYCLE THE DAY PRIOR
     Route: 042
  5. CYCLOPHOSPHAMIDE [Suspect]
     Active Substance: CYCLOPHOSPHAMIDE
     Indication: Metastases to bone
     Dosage: 1,000 MG, SECOND ROUND
     Route: 042
  6. CYCLOPHOSPHAMIDE [Suspect]
     Active Substance: CYCLOPHOSPHAMIDE
     Indication: Metastases to lymph nodes
     Dosage: CONTINUED TO RECEIVE CHEMOTHERAPY EVERY 3 WEEKS
     Route: 042
  7. CEFTRIAXONE [Suspect]
     Active Substance: CEFTRIAXONE
     Indication: Pneumonia
     Dosage: UNK
     Route: 065
  8. METOPROLOL TARTRATE [Suspect]
     Active Substance: METOPROLOL TARTRATE
     Indication: Ventricular tachycardia
     Dosage: 5 MG EVERY 4 HOURS
     Route: 042
  9. METOPROLOL TARTRATE [Suspect]
     Active Substance: METOPROLOL TARTRATE
     Indication: Ventricular tachycardia
     Dosage: TRANSITIONED TO 12.5 MG EVERY 12 HOURS THE NEXT DAY
     Route: 048
  10. METOPROLOL TARTRATE [Suspect]
     Active Substance: METOPROLOL TARTRATE
     Dosage: TITRATED UP TO 75 MG 3 TIMES DAILY OVER THE NEXT WEEK
     Route: 048
  11. OXYGEN [Suspect]
     Active Substance: OXYGEN
     Indication: Pneumonia
     Route: 065

REACTIONS (12)
  - Cardiotoxicity [Unknown]
  - Ventricular tachycardia [Recovered/Resolved]
  - Dyspnoea [Unknown]
  - Palpitations [Unknown]
  - Asthenia [Unknown]
  - Productive cough [Unknown]
  - Discomfort [Unknown]
  - Tachypnoea [Unknown]
  - Sinus tachycardia [Unknown]
  - Lung opacity [Unknown]
  - Ventricular extrasystoles [Unknown]
  - Exposure during pregnancy [Unknown]
